FAERS Safety Report 23912654 (Version 5)
Quarter: 2024Q3

REPORT INFORMATION
  Report Type: Report from Study
  Country: US (occurrence: US)
  Receive Date: 20240529
  Receipt Date: 20240912
  Transmission Date: 20241017
  Serious: Yes (Hospitalization, Other)
  Sender: ABBVIE
  Company Number: US-ABBVIE-5722454

PATIENT
  Sex: Male

DRUGS (2)
  1. VENCLEXTA [Suspect]
     Active Substance: VENETOCLAX
     Indication: Acute myeloid leukaemia
     Dosage: LAST ADMIN DATE-2023, 2 TABLETS ONCE DAILY ON DAYS 1-7 OF 28 DAY CYCLE
     Route: 048
     Dates: start: 202310
  2. VENCLEXTA [Suspect]
     Active Substance: VENETOCLAX
     Indication: Acute myeloid leukaemia
     Dosage: 100 MG 2 TABLETS ONCE DAILY ON DAYS 1-7 OF 28 DAY CYCLE
     Route: 048

REACTIONS (10)
  - Hospitalisation [Unknown]
  - Cataract [Unknown]
  - Arthralgia [Unknown]
  - White blood cell count increased [Unknown]
  - Contusion [Unknown]
  - Surgery [Unknown]
  - Constipation [Not Recovered/Not Resolved]
  - Fall [Recovered/Resolved]
  - Loss of consciousness [Unknown]
  - Rhinovirus infection [Unknown]
